FAERS Safety Report 20245566 (Version 1)
Quarter: 2021Q4

REPORT INFORMATION
  Report Type: Spontaneous
  Country: GR (occurrence: GR)
  Receive Date: 20211229
  Receipt Date: 20211229
  Transmission Date: 20220303
  Serious: Yes (Life-Threatening, Hospitalization)
  Sender: FDA-Public Use
  Company Number: GR-MLMSERVICE-20211215-3272807-1

PATIENT
  Age: 70 Year
  Sex: Female

DRUGS (3)
  1. METFORMIN [Suspect]
     Active Substance: METFORMIN HYDROCHLORIDE
     Indication: Type 2 diabetes mellitus
     Route: 065
  2. LEVOTHYROXINE [Concomitant]
     Active Substance: LEVOTHYROXINE
     Indication: Product used for unknown indication
  3. HYDROCHLOROTHIAZIDE;OLMESARTAN [Concomitant]
     Indication: Product used for unknown indication

REACTIONS (2)
  - Toxicity to various agents [Unknown]
  - Lactic acidosis [Recovering/Resolving]
